FAERS Safety Report 12762521 (Version 1)
Quarter: 2016Q3

REPORT INFORMATION
  Report Type: Report from Study
  Country: US (occurrence: US)
  Receive Date: 20160920
  Receipt Date: 20160920
  Transmission Date: 20161109
  Serious: Yes (Other)
  Sender: FDA-Public Use
  Company Number: US-ABBVIE-16P-163-1730834-00

PATIENT
  Age: 49 Year
  Sex: Female

DRUGS (5)
  1. LUPRON DEPOT [Suspect]
     Active Substance: LEUPROLIDE ACETATE
     Indication: ENDOMETRIOSIS
     Route: 050
  2. NORETHINDRONE ACETATE. [Concomitant]
     Active Substance: NORETHINDRONE ACETATE
     Indication: PRODUCT USED FOR UNKNOWN INDICATION
     Route: 048
     Dates: start: 20160630
  3. MULTIVITAMIN [Concomitant]
     Active Substance: VITAMINS
     Indication: VITAMIN SUPPLEMENTATION
     Route: 048
  4. FIBER SUPPLEMENT [Concomitant]
     Indication: NUTRITIONAL SUPPLEMENTATION
     Route: 048
  5. LUPRON DEPOT [Suspect]
     Active Substance: LEUPROLIDE ACETATE
     Indication: UTERINE LEIOMYOMA
     Route: 050
     Dates: start: 20160630

REACTIONS (3)
  - Abdominal pain lower [Recovering/Resolving]
  - Endometrial ablation [Recovered/Resolved]
  - Uterine leiomyoma [Recovered/Resolved]

NARRATIVE: CASE EVENT DATE: 201606
